FAERS Safety Report 7022282-2 (Version None)
Quarter: 2010Q3

REPORT INFORMATION
  Report Type: 
  Country: None (occurrence: None)
  Receive Date: 20100928
  Receipt Date: 20100913
  Transmission Date: 20110219
  Serious: Yes (Hospitalization)
  Sender: FDA-Public Use
  Company Number: 2010S1000750

PATIENT
  Age: 82 Year
  Sex: Male

DRUGS (8)
  1. LIVALO [Suspect]
     Indication: HYPERCHOLESTEROLAEMIA
     Dosage: 1 MG;1X;PO
     Route: 048
     Dates: start: 20100219, end: 20100601
  2. NORVASC [Concomitant]
  3. BISOPROLOL FUMARATE [Concomitant]
  4. FURSULTIAMINE [Concomitant]
  5. TAURINE [Concomitant]
  6. EPADEL-S [Concomitant]
  7. MAGMITT [Concomitant]
  8. CHINESE HERBAL MEDICINE [Concomitant]

REACTIONS (1)
  - ANTI-NEUTROPHIL CYTOPLASMIC ANTIBODY POSITIVE VASCULITIS [None]
